FAERS Safety Report 14015790 (Version 1)
Quarter: 2017Q3

REPORT INFORMATION
  Report Type: Report from Study
  Country: US (occurrence: US)
  Receive Date: 20170927
  Receipt Date: 20170927
  Transmission Date: 20171128
  Serious: Yes (Hospitalization)
  Sender: FDA-Public Use
  Company Number: US-ACTELION-A-US2017-159752

PATIENT
  Age: 6 Month
  Sex: Male

DRUGS (4)
  1. TRACLEER [Suspect]
     Active Substance: BOSENTAN
     Indication: PULMONARY ARTERIAL HYPERTENSION
     Dosage: 15.62 MG, BID
     Route: 048
     Dates: start: 20170612
  2. BUDESONIDE. [Concomitant]
     Active Substance: BUDESONIDE
     Dosage: 0.25 MG, 1 VIAL BID
     Dates: start: 20170324
  3. SILDENAFIL. [Concomitant]
     Active Substance: SILDENAFIL
     Dosage: 10 ML, 1 ML Q6HRS
  4. FUROSEMIDE. [Concomitant]
     Active Substance: FUROSEMIDE
     Dosage: 05 ML, QD
     Dates: start: 20170320

REACTIONS (7)
  - Mood altered [Unknown]
  - Blood pressure decreased [Unknown]
  - Atrial septal defect repair [Recovering/Resolving]
  - Cardiac operation [Recovering/Resolving]
  - Cyanosis [Recovering/Resolving]
  - Ventricular septal defect repair [Recovering/Resolving]
  - Patent ductus arteriosus repair [Recovering/Resolving]
